FAERS Safety Report 8432577-3 (Version None)
Quarter: 2012Q2

REPORT INFORMATION
  Report Type: 
  Country: None (occurrence: None)
  Receive Date: 20120613
  Receipt Date: 20120530
  Transmission Date: 20120825
  Serious: Yes (Hospitalization)
  Sender: FDA-Public Use
  Company Number: US-AMGEN-USASP2012033838

PATIENT
  Age: 63 Year
  Sex: Female

DRUGS (1)
  1. ENBREL [Suspect]
     Indication: RHEUMATOID ARTHRITIS
     Dosage: 50 MG, QWK
     Dates: start: 20110623, end: 20120101

REACTIONS (8)
  - COUGH [None]
  - HYPERSENSITIVITY [None]
  - AORTIC ANEURYSM [None]
  - IMPAIRED HEALING [None]
  - NASAL CONGESTION [None]
  - RHINORRHOEA [None]
  - GANGRENE [None]
  - INGROWING NAIL [None]
